FAERS Safety Report 17047276 (Version 1)
Quarter: 2019Q4

REPORT INFORMATION
  Report Type: Report from Study
  Country: ES (occurrence: ES)
  Receive Date: 20191119
  Receipt Date: 20191119
  Transmission Date: 20200122
  Serious: Yes (Death, Hospitalization)
  Sender: FDA-Public Use
  Company Number: ES-ELI_LILLY_AND_COMPANY-ES201911006506

PATIENT
  Age: 86 Year
  Sex: Male

DRUGS (8)
  1. FERRO SANOL [Concomitant]
     Active Substance: FERROUS GLYCINE SULFATE
     Indication: ANAEMIA
     Dosage: 1 DOSAGE FORM, DAILY
  2. SEGURIL [Concomitant]
     Active Substance: FUROSEMIDE
     Indication: CARDIAC DISORDER
     Dosage: 1 DOSAGE FORM, DAILY
  3. METFORMIN [Concomitant]
     Active Substance: METFORMIN HYDROCHLORIDE
     Indication: DIABETES MELLITUS
     Dosage: 1 DOSAGE FORM, DAILY
  4. ADENURIC [Concomitant]
     Active Substance: FEBUXOSTAT
     Indication: BLOOD URIC ACID INCREASED
     Dosage: 1 DOSAGE FORM, DAILY
  5. TERIPARATIDE [Suspect]
     Active Substance: TERIPARATIDE
     Indication: OSTEOPOROSIS
     Dosage: 20 UG, DAILY
     Route: 058
     Dates: start: 20190117
  6. COLCHICINE. [Concomitant]
     Active Substance: COLCHICINE
     Indication: BLOOD URIC ACID INCREASED
     Dosage: 1 DOSAGE FORM, DAILY
  7. LYRICA [Concomitant]
     Active Substance: PREGABALIN
     Indication: PAIN
     Dosage: 3 DOSAGE FORM, DAILY
  8. PREDNISONE. [Concomitant]
     Active Substance: PREDNISONE
     Indication: TEMPORAL ARTERITIS
     Dosage: 1 DOSAGE FORM, DAILY

REACTIONS (10)
  - Device failure [Unknown]
  - Pneumonia [Unknown]
  - Cardiac disorder [Unknown]
  - Dementia [Unknown]
  - Skin ulcer [Unknown]
  - Pneumonia [Unknown]
  - Cardio-respiratory arrest [Fatal]
  - Toxicity to various agents [Unknown]
  - Rash [Unknown]
  - Renal failure [Unknown]

NARRATIVE: CASE EVENT DATE: 201908
